FAERS Safety Report 25731191 (Version 3)
Quarter: 2025Q4

REPORT INFORMATION
  Report Type: Spontaneous
  Country: US (occurrence: US)
  Receive Date: 20250827
  Receipt Date: 20251103
  Transmission Date: 20260118
  Serious: Yes (Hospitalization)
  Sender: CSL BEHRING
  Company Number: US-BEH-2025216249

PATIENT
  Age: 44 Year
  Sex: Female
  Weight: 106.14 kg

DRUGS (4)
  1. HIZENTRA [Suspect]
     Active Substance: HUMAN IMMUNOGLOBULIN G
     Indication: Hypergammaglobulinaemia
     Dosage: 12 G, QW
     Route: 058
     Dates: start: 20240319
  2. HIZENTRA [Suspect]
     Active Substance: HUMAN IMMUNOGLOBULIN G
     Indication: Chronic sinusitis
     Dosage: 12 G, QW
     Route: 058
     Dates: start: 20240319
  3. HIZENTRA [Suspect]
     Active Substance: HUMAN IMMUNOGLOBULIN G
     Dosage: 12 G, QW
     Route: 058
  4. HIZENTRA [Suspect]
     Active Substance: HUMAN IMMUNOGLOBULIN G
     Dosage: 12 G, QW
     Route: 058

REACTIONS (14)
  - Adrenal insufficiency [Unknown]
  - Acute kidney injury [Unknown]
  - Renal impairment [Unknown]
  - Blood pressure decreased [Unknown]
  - Nausea [Unknown]
  - Vomiting [Unknown]
  - Dehydration [Unknown]
  - Acute kidney injury [Unknown]
  - Hypophagia [Unknown]
  - Contusion [Unknown]
  - Blister [Unknown]
  - Pain [Unknown]
  - Nausea [Unknown]
  - Off label use [Unknown]

NARRATIVE: CASE EVENT DATE: 20250808
